FAERS Safety Report 7883219 (Version 3)
Quarter: 2013Q4

REPORT INFORMATION
  Report Type: Spontaneous
  Country: US (occurrence: US)
  Receive Date: 20110404
  Receipt Date: 20131129
  Transmission Date: 20140711
  Serious: Yes (Hospitalization, Other)
  Sender: FDA-Public Use
  Company Number: US-JNJFOC-20110311982

PATIENT
  Age: 48 Year
  Sex: Male
  Weight: 72.58 kg

DRUGS (1)
  1. INTELENCE [Suspect]
     Indication: HIV INFECTION
     Route: 048
     Dates: start: 201006

REACTIONS (7)
  - Dyspnoea [Recovered/Resolved]
  - Tracheal obstruction [Recovered/Resolved]
  - Choking [Recovered/Resolved]
  - Foreign body [Not Recovered/Not Resolved]
  - Product quality issue [Unknown]
  - Product formulation issue [Unknown]
  - Product solubility abnormal [Unknown]
